FAERS Safety Report 5247684-6 (Version None)
Quarter: 2007Q1

REPORT INFORMATION
  Report Type: 
  Country: None (occurrence: None)
  Receive Date: 20070227
  Receipt Date: 20070215
  Transmission Date: 20070707
  Serious: Yes (Other)
  Sender: FDA-Public Use
  Company Number: US-ELI_LILLY_AND_COMPANY-US200702003708

PATIENT
  Age: 77 Year
  Sex: Female

DRUGS (3)
  1. HUMULIN L [Suspect]
     Indication: DIABETES MELLITUS
     Dosage: 40 U, EACH MORNING
  2. LANTUS [Concomitant]
     Dosage: 40 U, EACH MORNING
  3. NIACIN [Concomitant]

REACTIONS (27)
  - ANXIETY [None]
  - BLINDNESS TRANSIENT [None]
  - BLOOD CHOLESTEROL INCREASED [None]
  - BLOOD GLUCOSE DECREASED [None]
  - BLOOD GLUCOSE INCREASED [None]
  - BLOOD TRIGLYCERIDES INCREASED [None]
  - BURNING SENSATION [None]
  - CAROTID ARTERY OCCLUSION [None]
  - CATARACT [None]
  - CHOLELITHIASIS [None]
  - DYSPEPSIA [None]
  - FEELING ABNORMAL [None]
  - FEELING HOT [None]
  - HEPATIC PAIN [None]
  - LIMB INJURY [None]
  - LOCALISED INFECTION [None]
  - LOSS OF CONSCIOUSNESS [None]
  - MALAISE [None]
  - MUSCLE DISORDER [None]
  - NAUSEA [None]
  - PAIN [None]
  - PRURITUS [None]
  - RASH [None]
  - RENAL DISORDER [None]
  - SKIN WRINKLING [None]
  - SPEECH DISORDER [None]
  - VISUAL DISTURBANCE [None]
